FAERS Safety Report 17151951 (Version 5)
Quarter: 2020Q3

REPORT INFORMATION
  Report Type: Spontaneous
  Country: IN (occurrence: IN)
  Receive Date: 20191213
  Receipt Date: 20200917
  Transmission Date: 20201102
  Serious: Yes (Hospitalization, Other)
  Sender: FDA-Public Use
  Company Number: IN-PFIZER INC-2018518746

PATIENT
  Age: 64 Year
  Sex: Male

DRUGS (2)
  1. SUTENT [Suspect]
     Active Substance: SUNITINIB MALATE
     Indication: METASTATIC RENAL CELL CARCINOMA
     Dosage: 50 MG, CYCLIC, FOR 2 WEEKS ON AND 1 WEEK OFF
     Route: 048
     Dates: start: 20181212, end: 2019
  2. SUTENT [Suspect]
     Active Substance: SUNITINIB MALATE
     Dosage: 37.5 MG, CYCLIC (2 WEEKS , THEN 1 WEEK GAP)
     Route: 048

REACTIONS (20)
  - Feeding disorder [Unknown]
  - Chest pain [Unknown]
  - Blood alkaline phosphatase increased [Unknown]
  - Rash [Recovered/Resolved]
  - Periorbital swelling [Unknown]
  - Hiccups [Unknown]
  - Mouth ulceration [Unknown]
  - Haemoglobin decreased [Unknown]
  - Fatigue [Unknown]
  - Oral pain [Unknown]
  - Vomiting [Unknown]
  - Scrotal dermatitis [Unknown]
  - Haematuria [Unknown]
  - Neoplasm progression [Unknown]
  - Red blood cell count decreased [Unknown]
  - Blood albumin decreased [Unknown]
  - Blood potassium increased [Unknown]
  - Thrombosis [Unknown]
  - Hyponatraemia [Unknown]
  - Emphysema [Unknown]

NARRATIVE: CASE EVENT DATE: 20190429
